FAERS Safety Report 5445732-1 (Version None)
Quarter: 2007Q3

REPORT INFORMATION
  Report Type: 
  Country: None (occurrence: None)
  Receive Date: 20070904
  Receipt Date: 20070823
  Transmission Date: 20080115
  Serious: Yes (Other)
  Sender: FDA-Public Use
  Company Number: 17278

PATIENT
  Age: 73 Year
  Sex: Female

DRUGS (10)
  1. FLOXURIDINE [Suspect]
     Indication: METASTASES TO LUNG
  2. FLOXURIDINE [Suspect]
     Indication: RENAL CELL CARCINOMA STAGE UNSPECIFIED
  3. FLUOROURACIL [Suspect]
     Indication: METASTASES TO LUNG
  4. FLUOROURACIL [Suspect]
     Indication: RENAL CELL CARCINOMA STAGE UNSPECIFIED
  5. ALPHA-INTERFERON [Suspect]
     Indication: METASTASES TO LUNG
  6. ALPHA-INTERFERON [Suspect]
     Indication: RENAL CELL CARCINOMA STAGE UNSPECIFIED
  7. GEMCITABINE HCL [Suspect]
     Indication: METASTASES TO LUNG
  8. GEMCITABINE HCL [Suspect]
     Indication: RENAL CELL CARCINOMA STAGE UNSPECIFIED
  9. CAPECITABINE [Suspect]
     Indication: METASTASES TO LUNG
  10. CAPECITABINE [Suspect]
     Indication: RENAL CELL CARCINOMA STAGE UNSPECIFIED

REACTIONS (5)
  - DYSPNOEA [None]
  - HAEMATOCRIT INCREASED [None]
  - HAEMOGLOBIN INCREASED [None]
  - PULMONARY ARTERIOVENOUS FISTULA [None]
  - TACHYCARDIA [None]
